FAERS Safety Report 9763861 (Version 1)
Quarter: 2013Q4

REPORT INFORMATION
  Report Type: Spontaneous
  Country: US (occurrence: US)
  Receive Date: 20131216
  Receipt Date: 20131216
  Transmission Date: 20140711
  Serious: No
  Sender: FDA-Public Use
  Company Number: US-BIOGENIDEC-2013BI115549

PATIENT
  Age: 54 Year
  Sex: Female
  Weight: 78 kg

DRUGS (5)
  1. TECFIDERA [Suspect]
     Indication: PRODUCT USED FOR UNKNOWN INDICATION
     Route: 048
  2. FLUOXETINE [Concomitant]
  3. GABAPENTIN [Concomitant]
  4. LISINOP/HCTZ [Concomitant]
  5. CRESTOR [Concomitant]

REACTIONS (4)
  - Abdominal distension [Unknown]
  - Rash [Unknown]
  - Burning sensation [Unknown]
  - Abdominal discomfort [Unknown]
